FAERS Safety Report 6749671-5 (Version None)
Quarter: 2010Q2

REPORT INFORMATION
  Report Type: 
  Country: None (occurrence: None)
  Receive Date: 20100601
  Receipt Date: 20100521
  Transmission Date: 20101027
  Serious: Yes (Other)
  Sender: FDA-Public Use
  Company Number: B0657725A

PATIENT
  Age: 43 Year
  Sex: Female

DRUGS (1)
  1. SERETIDE [Suspect]
     Indication: ASTHMA
     Route: 055
     Dates: start: 20100428, end: 20100513

REACTIONS (7)
  - ASTHMA [None]
  - EATING DISORDER [None]
  - OEDEMA [None]
  - PAIN [None]
  - PRURITUS [None]
  - RASH MACULAR [None]
  - TONGUE DISORDER [None]
